FAERS Safety Report 25504437 (Version 1)
Quarter: 2025Q3

REPORT INFORMATION
  Report Type: Spontaneous
  Country: US (occurrence: None)
  Receive Date: 20250701
  Receipt Date: 20250701
  Transmission Date: 20251021
  Serious: No
  Sender: FDA-CTU
  Company Number: None

PATIENT
  Age: 65 Year
  Sex: Female

DRUGS (1)
  1. DOXYCYCLINE HYCLATE [Suspect]
     Active Substance: DOXYCYCLINE HYCLATE
     Indication: Cervix inflammation
     Dosage: 14 CAPSULES TWICE A DAY ORAL
     Route: 048
     Dates: start: 20250625, end: 20250630

REACTIONS (9)
  - Near death experience [None]
  - Sneezing [None]
  - Nasal congestion [None]
  - Oropharyngeal pain [None]
  - Cough [None]
  - Headache [None]
  - Diarrhoea [None]
  - Fatigue [None]
  - Abnormal dreams [None]

NARRATIVE: CASE EVENT DATE: 20250626
